FAERS Safety Report 7236990-1 (Version None)
Quarter: 2011Q1

REPORT INFORMATION
  Report Type: 
  Country: None (occurrence: None)
  Receive Date: 20110121
  Receipt Date: 20091026
  Transmission Date: 20110831
  Serious: No
  Sender: FDA-Public Use
  Company Number: 2009BI034885

PATIENT
  Sex: Female

DRUGS (3)
  1. LEVETIRACETAM [Concomitant]
     Indication: CONVULSION
  2. KEPPRA [Concomitant]
     Indication: CONVULSION
  3. TYSABRI [Suspect]
     Indication: MULTIPLE SCLEROSIS
     Route: 042
     Dates: start: 20090428, end: 20100923

REACTIONS (4)
  - ALOPECIA [None]
  - MEMORY IMPAIRMENT [None]
  - FRUSTRATION [None]
  - INFLUENZA LIKE ILLNESS [None]
